FAERS Safety Report 4971513-9 (Version None)
Quarter: 2006Q2

REPORT INFORMATION
  Report Type: 
  Country: None (occurrence: None)
  Receive Date: 20060413
  Receipt Date: 20060407
  Transmission Date: 20061013
  Serious: Yes (Hospitalization)
  Sender: FDA-Public Use
  Company Number: FR-AVENTIS-200611284FR

PATIENT
  Age: 46 Year
  Sex: Female

DRUGS (1)
  1. RODOGYL [Suspect]
     Route: 048
     Dates: start: 20060116, end: 20060116

REACTIONS (3)
  - HAEMOGLOBIN DECREASED [None]
  - PURPURA [None]
  - THROMBOCYTOPENIA [None]
